FAERS Safety Report 7681972-9 (Version None)
Quarter: 2011Q3

REPORT INFORMATION
  Report Type: 
  Country: None (occurrence: None)
  Receive Date: 20110815
  Receipt Date: 20110803
  Transmission Date: 20111222
  Serious: No
  Sender: FDA-Public Use
  Company Number: US-BIOGENIDEC-2011BI029892

PATIENT
  Age: 55 Year
  Sex: Female

DRUGS (1)
  1. AVONEX [Suspect]
     Indication: MULTIPLE SCLEROSIS
     Route: 030

REACTIONS (6)
  - EYE DISORDER [None]
  - FALL [None]
  - BONE DISORDER [None]
  - GAIT DISTURBANCE [None]
  - BALANCE DISORDER [None]
  - BLADDER DISORDER [None]
